FAERS Safety Report 4847925-0 (Version None)
Quarter: 2005Q4

REPORT INFORMATION
  Report Type: 
  Country: None (occurrence: None)
  Receive Date: 20051206
  Receipt Date: 20051102
  Transmission Date: 20060501
  Serious: Yes (Hospitalization)
  Sender: FDA-Public Use
  Company Number: 2005BI0200065

PATIENT
  Age: 69 Year
  Sex: Female

DRUGS (6)
  1. AVONEX [Suspect]
     Indication: MULTIPLE SCLEROSIS
     Dosage: 30 UG; QW; IM
     Route: 030
     Dates: start: 20010209, end: 20030801
  2. LIPRAM [Concomitant]
  3. PRIMIDONE [Concomitant]
  4. ATENOLOL [Concomitant]
  5. VICODIN [Concomitant]
  6. ACTONEL [Concomitant]

REACTIONS (3)
  - CONFUSIONAL STATE [None]
  - DEHYDRATION [None]
  - GASTROENTERITIS VIRAL [None]
